FAERS Safety Report 6480787-7 (Version None)
Quarter: 2009Q4

REPORT INFORMATION
  Report Type: 
  Country: None (occurrence: None)
  Receive Date: 20091123
  Receipt Date: 20090826
  Transmission Date: 20100525
  Serious: Yes (Hospitalization)
  Sender: FDA-Public Use
  Company Number: 8050914

PATIENT
  Age: 57 Year
  Sex: Male

DRUGS (8)
  1. CIMZIA [Suspect]
     Indication: CROHN'S DISEASE
     Dosage: 400 MG SC
     Route: 058
     Dates: start: 20090817
  2. PENTASA [Concomitant]
  3. CODEINE [Concomitant]
  4. OPIUM [Concomitant]
  5. IMODIUM [Concomitant]
  6. SOMA [Concomitant]
  7. IRON [Concomitant]
  8. TPN [Concomitant]

REACTIONS (2)
  - CHEST PAIN [None]
  - HAEMOGLOBIN DECREASED [None]
